FAERS Safety Report 18382772 (Version 4)
Quarter: 2022Q1

REPORT INFORMATION
  Report Type: Report from Study
  Country: US (occurrence: US)
  Receive Date: 20201014
  Receipt Date: 20220216
  Transmission Date: 20220423
  Serious: Yes (Life-Threatening, Hospitalization)
  Sender: FDA-Public Use
  Company Number: NVSC2019US046609

PATIENT
  Age: 16 Year
  Sex: Male

DRUGS (15)
  1. RUXOLITINIB [Suspect]
     Active Substance: RUXOLITINIB
     Indication: Acute lymphocytic leukaemia
     Dosage: 90 MG, BID
     Route: 048
     Dates: start: 20161116, end: 20191205
  2. RUXOLITINIB [Suspect]
     Active Substance: RUXOLITINIB
     Dosage: 85 MG, BID
     Route: 048
     Dates: start: 20191212
  3. PREDNISONE [Suspect]
     Active Substance: PREDNISONE
     Indication: Acute lymphocytic leukaemia
     Dosage: 35 MG, BID
     Route: 048
     Dates: start: 20161011, end: 20191112
  4. PREDNISONE [Suspect]
     Active Substance: PREDNISONE
     Dosage: 35 MG, BID
     Route: 048
     Dates: start: 20200102
  5. VINCRISTINE [Suspect]
     Active Substance: VINCRISTINE
     Indication: Acute lymphocytic leukaemia
     Dosage: 2 MILLIGRAM, ONCE
     Route: 042
     Dates: start: 20161011
  6. MERCAPTOPURINE [Suspect]
     Active Substance: MERCAPTOPURINE
     Indication: Acute lymphocytic leukaemia
     Dosage: 900 MILLIGRAM, WEEKLY
     Route: 048
     Dates: start: 20161116, end: 20191120
  7. MERCAPTOPURINE [Suspect]
     Active Substance: MERCAPTOPURINE
     Dosage: 450 MILLIGRAM, WEEKLY
     Route: 048
     Dates: start: 20191212
  8. METHOTREXATE [Suspect]
     Active Substance: METHOTREXATE
     Indication: Acute lymphocytic leukaemia
     Dosage: 15 MILLIGRAM
     Route: 037
     Dates: start: 20161018, end: 20190913
  9. METHOTREXATE [Suspect]
     Active Substance: METHOTREXATE
     Dosage: 35 MILLIGRAM, WEEKLY (15 MG/M2)
     Route: 048
     Dates: start: 20170130, end: 20191107
  10. METHOTREXATE [Suspect]
     Active Substance: METHOTREXATE
     Dosage: 17.2 MILLIGRAM, WEEKLY (10 MG/M2/DOSE)
     Route: 048
     Dates: start: 20191212
  11. METHOTREXATE [Suspect]
     Active Substance: METHOTREXATE
     Dosage: 15 MILLIGRAM
     Route: 037
     Dates: start: 20200102
  12. ZOFRAN [Concomitant]
     Active Substance: ONDANSETRON HYDROCHLORIDE
     Indication: Nausea
     Dosage: 8 MG, TID
     Route: 048
     Dates: start: 20161116
  13. LORATADINE [Concomitant]
     Active Substance: LORATADINE
     Indication: Nausea
     Dosage: 10 MILLIGRAM, QD
     Route: 048
     Dates: start: 20170915
  14. LORATADINE [Concomitant]
     Active Substance: LORATADINE
     Indication: Wheezing
  15. ALBUTEROL SULFATE [Concomitant]
     Active Substance: ALBUTEROL SULFATE
     Indication: Wheezing
     Dosage: 2 PUFF, EVERY 4 HOURS AS NEEDED
     Route: 065
     Dates: start: 20170928, end: 20190131

REACTIONS (6)
  - Pneumonia [Recovered/Resolved]
  - Pyrexia [Recovered/Resolved]
  - Adenovirus infection [Recovered/Resolved]
  - Febrile neutropenia [Recovered/Resolved]
  - Adenovirus infection [Recovered/Resolved]
  - Parainfluenzae virus infection [Recovered/Resolved]

NARRATIVE: CASE EVENT DATE: 20191114
